FAERS Safety Report 10682884 (Version 1)
Quarter: 2014Q4

REPORT INFORMATION
  Report Type: Spontaneous
  Country: US (occurrence: None)
  Receive Date: 20141229
  Receipt Date: 20141229
  Transmission Date: 20150529
  Serious: Yes (Hospitalization)
  Sender: FDA-Public Use
  Company Number: None

PATIENT
  Age: 77 Year
  Sex: Female
  Weight: 74 kg

DRUGS (1)
  1. ZYDELIG [Suspect]
     Active Substance: IDELALISIB

REACTIONS (3)
  - Asthenia [None]
  - Dizziness [None]
  - Liver function test abnormal [None]

NARRATIVE: CASE EVENT DATE: 20141221
